FAERS Safety Report 9683025 (Version 1)
Quarter: 2013Q4

REPORT INFORMATION
  Report Type: Spontaneous
  Country: US (occurrence: US)
  Receive Date: 20131112
  Receipt Date: 20131112
  Transmission Date: 20140711
  Serious: No
  Sender: FDA-Public Use
  Company Number: US-PFIZER INC-2013317766

PATIENT
  Age: 41 Year
  Sex: Male
  Weight: 118 kg

DRUGS (2)
  1. VIAGRA [Suspect]
     Indication: ERECTILE DYSFUNCTION
     Dosage: 100 MG, SINGLE
     Dates: start: 20131102, end: 20131102
  2. LISINOPRIL W/HYDROCHLOROTHIAZIDE [Concomitant]
     Indication: HYPERTENSION
     Dosage: LISINOPRIL 20MG / HYDROCHLOROTHIAZIDE 25 MG, DAILY

REACTIONS (3)
  - Thirst [Recovered/Resolved]
  - Dry mouth [Recovered/Resolved]
  - Drug ineffective [Unknown]
